FAERS Safety Report 15655178 (Version 1)
Quarter: 2018Q4

REPORT INFORMATION
  Report Type: Report from Study
  Country: US (occurrence: US)
  Receive Date: 20181126
  Receipt Date: 20181126
  Transmission Date: 20190205
  Serious: Yes (Other)
  Sender: FDA-Public Use
  Company Number: US-ROCHE-2217290

PATIENT
  Age: 22 Year
  Sex: Female
  Weight: 56.3 kg

DRUGS (3)
  1. OCREVUS [Suspect]
     Active Substance: OCRELIZUMAB
     Indication: RELAPSING-REMITTING MULTIPLE SCLEROSIS
     Dosage: SECOND HALF DOSE
     Route: 065
     Dates: start: 20181109
  2. OCREVUS [Suspect]
     Active Substance: OCRELIZUMAB
     Dosage: HALF DOSE
     Route: 065
     Dates: start: 20181026, end: 20181026
  3. OCELLA [Concomitant]
     Active Substance: DROSPIRENONE\ETHINYL ESTRADIOL
     Indication: CONTRACEPTION
     Dosage: ONGOING:YES
     Route: 065

REACTIONS (4)
  - Pain [Not Recovered/Not Resolved]
  - Headache [Unknown]
  - Urinary tract infection [Recovered/Resolved]
  - Malaise [Not Recovered/Not Resolved]

NARRATIVE: CASE EVENT DATE: 20181030
